FAERS Safety Report 23467082 (Version 1)
Quarter: 2024Q1

REPORT INFORMATION
  Report Type: Spontaneous
  Country: DE (occurrence: DE)
  Receive Date: 20240201
  Receipt Date: 20240201
  Transmission Date: 20240410
  Serious: Yes (Life-Threatening, Hospitalization, Other)
  Sender: FDA-Public Use
  Company Number: DE-SA-2023SA173164

PATIENT
  Sex: Male
  Weight: 75.8 kg

DRUGS (29)
  1. AZACITIDINE [Suspect]
     Active Substance: AZACITIDINE
     Dosage: 137 MG
     Route: 058
     Dates: start: 20230127, end: 20230127
  2. AZACITIDINE [Suspect]
     Active Substance: AZACITIDINE
     Dosage: 137 MG
     Route: 058
     Dates: start: 20230128, end: 20230128
  3. AZACITIDINE [Suspect]
     Active Substance: AZACITIDINE
     Dosage: 137 MG
     Route: 058
     Dates: start: 20230129, end: 20230129
  4. AZACITIDINE [Suspect]
     Active Substance: AZACITIDINE
     Dosage: 137 MG
     Route: 058
     Dates: start: 20230130, end: 20230130
  5. AZACITIDINE [Suspect]
     Active Substance: AZACITIDINE
     Dosage: 137 MG
     Route: 058
     Dates: start: 20230131, end: 20230131
  6. AZACITIDINE [Suspect]
     Active Substance: AZACITIDINE
     Dosage: 137 MG
     Route: 058
     Dates: start: 20230201, end: 20230201
  7. AZACITIDINE [Suspect]
     Active Substance: AZACITIDINE
     Dosage: 137 MG
     Route: 058
     Dates: start: 20230202, end: 20230202
  8. AZACITIDINE [Suspect]
     Active Substance: AZACITIDINE
     Indication: Acute myeloid leukaemia
     Dosage: 140 MG
     Route: 058
     Dates: start: 20221230, end: 20221230
  9. AZACITIDINE [Suspect]
     Active Substance: AZACITIDINE
     Dosage: 140 MG
     Route: 058
     Dates: start: 20221231, end: 20221231
  10. AZACITIDINE [Suspect]
     Active Substance: AZACITIDINE
     Dosage: 140 MG
     Route: 058
     Dates: start: 20230101, end: 20230101
  11. AZACITIDINE [Suspect]
     Active Substance: AZACITIDINE
     Dosage: 140 MG
     Route: 058
     Dates: start: 20230102, end: 20230102
  12. AZACITIDINE [Suspect]
     Active Substance: AZACITIDINE
     Dosage: 140 MG
     Route: 058
     Dates: start: 20230103, end: 20230103
  13. AZACITIDINE [Suspect]
     Active Substance: AZACITIDINE
     Dosage: 140 MG
     Route: 058
     Dates: start: 20230104, end: 20230104
  14. AZACITIDINE [Suspect]
     Active Substance: AZACITIDINE
     Dosage: 140 MG
     Route: 058
     Dates: start: 20230105, end: 20230105
  15. NOVALGIN (METAMIZOLE SODIUM) [Suspect]
     Active Substance: METAMIZOLE SODIUM
     Indication: Product used for unknown indication
     Dosage: 1 G
     Route: 042
  16. ACETAMINOPHEN [Suspect]
     Active Substance: ACETAMINOPHEN
     Indication: Product used for unknown indication
     Dosage: 1 G
     Route: 042
  17. VENETOCLAX [Suspect]
     Active Substance: VENETOCLAX
     Dosage: 200 MG, QD
     Route: 048
     Dates: start: 20230203
  18. VENETOCLAX [Suspect]
     Active Substance: VENETOCLAX
     Dosage: 400 MG, QD
     Route: 048
     Dates: start: 20230124, end: 20230125
  19. VENETOCLAX [Suspect]
     Active Substance: VENETOCLAX
     Dosage: 400 MG, QD
     Route: 048
     Dates: start: 20230126, end: 20230202
  20. VENETOCLAX [Suspect]
     Active Substance: VENETOCLAX
     Indication: Acute myeloid leukaemia
     Dosage: 70 MG, QD
     Route: 048
     Dates: start: 20221230, end: 20230123
  21. AMOXICILLIN\CLAVULANIC ACID [Concomitant]
     Active Substance: AMOXICILLIN\CLAVULANIC ACID
     Indication: Product used for unknown indication
     Dosage: DOSE DESCRIPTION : UNK
     Route: 065
     Dates: start: 20221212, end: 20221217
  22. CANDESARTAN [Concomitant]
     Active Substance: CANDESARTAN
     Indication: Product used for unknown indication
     Dosage: UNK
     Route: 065
     Dates: start: 20221104
  23. CIPRALEX [Concomitant]
     Active Substance: ESCITALOPRAM OXALATE
     Indication: Product used for unknown indication
     Dosage: UNK
     Route: 065
     Dates: start: 20230108, end: 20230208
  24. ENOXAPARIN [Concomitant]
     Active Substance: ENOXAPARIN
     Indication: Product used for unknown indication
     Dosage: UNK
     Route: 065
     Dates: start: 20230109, end: 20230208
  25. ESCITALOPRAM [Concomitant]
     Active Substance: ESCITALOPRAM OXALATE
     Indication: Product used for unknown indication
     Dosage: UNK
     Route: 065
  26. GLANDOMED [Concomitant]
     Indication: Product used for unknown indication
     Dosage: UNK
     Route: 065
     Dates: start: 20230108, end: 20230208
  27. MIRTAZAPINE [Concomitant]
     Active Substance: MIRTAZAPINE
     Indication: Product used for unknown indication
     Dosage: UNK
     Route: 065
  28. POSACONAZOLE [Concomitant]
     Active Substance: POSACONAZOLE
     Indication: Product used for unknown indication
     Dosage: UNK
     Route: 065
     Dates: start: 20221102
  29. POSACONAZOLE [Concomitant]
     Active Substance: POSACONAZOLE
     Dosage: UNK
     Route: 065
     Dates: start: 20221102

REACTIONS (2)
  - Thrombocytopenia [Recovered/Resolved]
  - Febrile neutropenia [Recovered/Resolved]

NARRATIVE: CASE EVENT DATE: 20230101
